FAERS Safety Report 19990990 (Version 2)
Quarter: 2022Q1

REPORT INFORMATION
  Report Type: Report from Study
  Country: IT (occurrence: IT)
  Receive Date: 20211025
  Receipt Date: 20220221
  Transmission Date: 20220423
  Serious: No
  Sender: FDA-Public Use
  Company Number: IT-FEDR-MF-002-3561002-20211013-0003SG

PATIENT
  Age: 77 Year
  Sex: Female
  Weight: 68 kg

DRUGS (2)
  1. FEDRATINIB [Suspect]
     Active Substance: FEDRATINIB
     Indication: Primary myelofibrosis
     Dosage: 400 MG X 1 X 1 DAYS
     Route: 048
     Dates: start: 20210423
  2. RUXOLITINIB [Suspect]
     Active Substance: RUXOLITINIB
     Indication: Primary myelofibrosis
     Dosage: 5 MG X 2 X 1 DAYS
     Route: 048
     Dates: start: 20201016, end: 20210407

REACTIONS (1)
  - Vitamin B1 decreased [Not Recovered/Not Resolved]

NARRATIVE: CASE EVENT DATE: 20210618
